FAERS Safety Report 9035982 (Version 1)
Quarter: 2013Q1

REPORT INFORMATION
  Report Type: Report from Study
  Country: US (occurrence: US)
  Receive Date: 20130129
  Receipt Date: 20130129
  Transmission Date: 20140127
  Serious: No
  Sender: FDA-Public Use
  Company Number: US-ABBOTT-12P-163-0917702-00

PATIENT
  Sex: Male
  Weight: 105.33 kg

DRUGS (13)
  1. HUMIRA 40 MG/0.8 ML PEN [Suspect]
     Indication: CROHN^S DISEASE
     Dates: start: 200904
  2. Z-PACK AZITHROMYCIN 250 MG TEVA [Suspect]
     Indication: BRONCHITIS
     Dates: start: 201202
  3. Z-PACK AZITHROMYCIN 250 MG TEVA [Suspect]
     Indication: SINUSITIS
  4. Z-PACK AZITHROMYCIN 250 MG TEVA [Suspect]
     Indication: EAR INFECTION
  5. PREDNISONE [Concomitant]
     Indication: CROHN^S DISEASE
     Dosage: DOSAGE INCREASED WITH EVENT
  6. PRILOSEC [Concomitant]
     Indication: GASTROOESOPHAGEAL REFLUX DISEASE
  7. K-DUR [Concomitant]
     Indication: BLOOD POTASSIUM DECREASED
  8. PENTASA [Concomitant]
     Indication: CROHN^S DISEASE
  9. VITAMIN D3 [Concomitant]
     Indication: OSTEOPENIA
  10. CALCIUM WITH VITAMIN D [Concomitant]
     Indication: MINERAL SUPPLEMENTATION
  11. VITAMIN B12 [Concomitant]
     Indication: VITAMIN SUPPLEMENTATION
  12. VENTOLIN [Concomitant]
     Indication: ASTHMA
  13. HYDROXYZINE [Concomitant]
     Indication: GASTROOESOPHAGEAL REFLUX DISEASE

REACTIONS (4)
  - Bronchitis [Recovered/Resolved]
  - Sinusitis [Recovered/Resolved]
  - Ear infection [Recovered/Resolved]
  - Abdominal discomfort [Unknown]
